FAERS Safety Report 5980915-3 (Version None)
Quarter: 2008Q4

REPORT INFORMATION
  Report Type: 
  Country: None (occurrence: None)
  Receive Date: 20081205
  Receipt Date: 20080723
  Transmission Date: 20090506
  Serious: No
  Sender: FDA-Public Use
  Company Number: A0739052A

PATIENT
  Age: 58 Year
  Sex: Male

DRUGS (7)
  1. COMMIT [Suspect]
     Dates: start: 20080713
  2. NIFEDIPINE [Concomitant]
  3. SIMVASTATIN [Concomitant]
  4. EFFEXOR [Concomitant]
  5. ZYPREXA [Concomitant]
  6. CLORAZEPATE DIPOTASSIUM [Concomitant]
  7. TYLENOL (CAPLET) [Concomitant]

REACTIONS (3)
  - HICCUPS [None]
  - INTENTIONAL DRUG MISUSE [None]
  - NICOTINE DEPENDENCE [None]
